FAERS Safety Report 5561706-4 (Version None)
Quarter: 2007Q4

REPORT INFORMATION
  Report Type: 
  Country: None (occurrence: None)
  Receive Date: 20071215
  Receipt Date: 20071010
  Transmission Date: 20080405
  Serious: No
  Sender: FDA-Public Use
  Company Number: US-AMGEN-KDL247529

PATIENT
  Sex: Female

DRUGS (2)
  1. ENBREL [Suspect]
     Indication: ANKYLOSING SPONDYLITIS
     Route: 058
     Dates: start: 20070910
  2. METHOTREXATE [Concomitant]
     Route: 048
     Dates: start: 20070601

REACTIONS (5)
  - DIZZINESS [None]
  - FLUSHING [None]
  - HOT FLUSH [None]
  - MOTION SICKNESS [None]
  - RASH MACULAR [None]
